FAERS Safety Report 4943361-7 (Version None)
Quarter: 2006Q1

REPORT INFORMATION
  Report Type: 
  Country: None (occurrence: None)
  Receive Date: 20060309
  Receipt Date: 20060221
  Transmission Date: 20060701
  Serious: Yes (Death, Hospitalization)
  Sender: FDA-Public Use
  Company Number: 2006-BP-00139RO

PATIENT
  Age: 63 Year
  Sex: Male

DRUGS (16)
  1. PREDNISONE TAB [Suspect]
     Indication: PROSTATE CANCER
     Dosage: 10 MG DAILY, PO
     Route: 048
     Dates: start: 20051201, end: 20051220
  2. MITOXANTRONE [Suspect]
     Indication: PROSTATE CANCER
     Dosage: 12 MG/M2 (22.5 MG) EVERY THREE WEEKS, IV
     Route: 042
     Dates: start: 20051201, end: 20051220
  3. PAMIDRONATE DISODIUM [Concomitant]
  4. SENNA (SENNA ALEXANDRINA) [Concomitant]
  5. FLUCONAZOLE [Concomitant]
  6. NYSTATIN [Concomitant]
  7. EPOETIN ALFA (EPOETIN ALFA) [Concomitant]
  8. MULTIVITAMIN [Concomitant]
  9. VITAMIN E [Concomitant]
  10. ASCORBIC ACID [Concomitant]
  11. PALONOSETRON (PALONOSETRON) [Concomitant]
  12. LORAZEPAM [Concomitant]
  13. HYDROCODONE BITRATRATE (HYDROCODONE BITARTRATE) [Concomitant]
  14. MEPERIDINE HCL [Concomitant]
  15. HEPARIN [Concomitant]
  16. LEVOFLOXACIN [Concomitant]

REACTIONS (15)
  - BELLIGERENCE [None]
  - CANDIDIASIS [None]
  - CHEMOTHERAPY [None]
  - DEHYDRATION [None]
  - DISEASE PROGRESSION [None]
  - HYPOPHARYNGEAL NEOPLASM [None]
  - INCREASED UPPER AIRWAY SECRETION [None]
  - MUCOSAL INFLAMMATION [None]
  - NEUTROPENIA [None]
  - ORAL INTAKE REDUCED [None]
  - PNEUMONIA [None]
  - PNEUMONIA ASPIRATION [None]
  - PROTHROMBIN TIME PROLONGED [None]
  - RHINORRHOEA [None]
  - WHITE BLOOD CELL COUNT DECREASED [None]
